FAERS Safety Report 5094832-7 (Version None)
Quarter: 2006Q3

REPORT INFORMATION
  Report Type: 
  Country: None (occurrence: None)
  Receive Date: 20060830
  Receipt Date: 20060830
  Transmission Date: 20061208
  Serious: Yes (Other)
  Sender: FDA-Public Use
  Company Number: None

PATIENT
  Sex: Female

DRUGS (1)
  1. GABAPENTIN [Suspect]
     Dosage: 800MG  TID  PO
     Route: 048
     Dates: start: 19950101, end: 19980101

REACTIONS (2)
  - ADVERSE DRUG REACTION [None]
  - NO THERAPEUTIC RESPONSE [None]
